FAERS Safety Report 8603797-X (Version None)
Quarter: 2012Q3

REPORT INFORMATION
  Report Type: 
  Country: None (occurrence: None)
  Receive Date: 20120818
  Receipt Date: 20120808
  Transmission Date: 20120928
  Serious: Yes (Hospitalization, Other)
  Sender: FDA-Public Use
  Company Number: US-ACCORD-014324

PATIENT
  Age: 60 Year
  Sex: Male

DRUGS (4)
  1. MYCOPHENOLATE MOFETIL [Suspect]
     Indication: IMMUNOSUPPRESSION
  2. VALGANCICLOVIR [Suspect]
  3. TACROLIMUS [Suspect]
     Indication: IMMUNOSUPPRESSION
  4. PREDNISONE TAB [Suspect]
     Indication: IMMUNOSUPPRESSION
     Route: 048

REACTIONS (5)
  - POLYOMAVIRUS-ASSOCIATED NEPHROPATHY [None]
  - LUNG INFECTION [None]
  - BONE MARROW FAILURE [None]
  - LIVER ABSCESS [None]
  - MYCOBACTERIUM KANSASII INFECTION [None]
